FAERS Safety Report 5258382-7 (Version None)
Quarter: 2007Q1

REPORT INFORMATION
  Report Type: 
  Country: None (occurrence: None)
  Receive Date: 20070306
  Receipt Date: 20070306
  Transmission Date: 20070707
  Serious: Yes (Life-Threatening, Hospitalization)
  Sender: FDA-Public Use
  Company Number: None

PATIENT
  Age: 80 Year
  Sex: Female
  Weight: 69 kg

DRUGS (8)
  1. ESMOLOL HCL [Suspect]
     Indication: HEART RATE ABNORMAL
     Dosage: IV
     Route: 042
  2. MORPHINE [Concomitant]
  3. VICODIN [Concomitant]
  4. AMBIEN [Concomitant]
  5. TYLENOL [Concomitant]
  6. LISINOPRIL [Concomitant]
  7. HYDROCHLOROTHIAZIDE [Concomitant]
  8. TUMS [Concomitant]

REACTIONS (9)
  - ATRIAL FIBRILLATION [None]
  - BRADYCARDIA [None]
  - DIZZINESS [None]
  - FALL [None]
  - FIBULA FRACTURE [None]
  - MYOCARDIAL INFARCTION [None]
  - SHOCK [None]
  - SINUS TACHYCARDIA [None]
  - TIBIA FRACTURE [None]
